FAERS Safety Report 6547380-9 (Version None)
Quarter: 2010Q1

REPORT INFORMATION
  Report Type: 
  Country: None (occurrence: None)
  Receive Date: 20100119
  Receipt Date: 20100104
  Transmission Date: 20100710
  Serious: Yes (Death)
  Sender: FDA-Public Use
  Company Number: AE 2010-001

PATIENT
  Age: 48 Year
  Sex: Male

DRUGS (4)
  1. FAZACLO ODT [Suspect]
     Indication: OBSESSIVE-COMPULSIVE DISORDER
     Dosage: 400MG DAILY PO
     Route: 048
     Dates: start: 20060209, end: 20091101
  2. LIPITOR [Concomitant]
  3. ALPRAZOLAM [Concomitant]
  4. STOOL SOFTENER [Concomitant]

REACTIONS (1)
  - MYOCARDIAL INFARCTION [None]
